APPROVED DRUG PRODUCT: ILOPERIDONE
Active Ingredient: ILOPERIDONE
Strength: 10MG
Dosage Form/Route: TABLET;ORAL
Application: A207098 | Product #006
Applicant: TARO PHARMACEUTICAL INDUSTRIES LTD
Approved: Jul 22, 2019 | RLD: No | RS: No | Type: DISCN